FAERS Safety Report 13863408 (Version 7)
Quarter: 2017Q4

REPORT INFORMATION
  Report Type: Spontaneous
  Country: US (occurrence: US)
  Receive Date: 20170814
  Receipt Date: 20171006
  Transmission Date: 20180320
  Serious: No
  Sender: FDA-Public Use
  Company Number: US-PFIZER INC-2017346433

PATIENT
  Age: 68 Year
  Sex: Female
  Weight: 56.69 kg

DRUGS (4)
  1. LEVOTHYROXINE. [Concomitant]
     Active Substance: LEVOTHYROXINE
     Dosage: 75 MG, 1X/DAY (TAKEN IN AM AT BREAKFAST)
  2. MEDROXYPROGESTERONE [Concomitant]
     Active Substance: MEDROXYPROGESTERONE
     Dosage: 5 MG, 1X/DAY (TAKEN IN AM AT BREAKFAST)
  3. ESTRADIOL. [Concomitant]
     Active Substance: ESTRADIOL
     Dosage: 1 MG, 1X/DAY
  4. XELJANZ XR [Suspect]
     Active Substance: TOFACITINIB CITRATE
     Indication: RHEUMATOID ARTHRITIS
     Dosage: 11 MG, 1X/DAY
     Route: 048

REACTIONS (4)
  - Medication residue present [Not Recovered/Not Resolved]
  - Drug ineffective [Recovered/Resolved]
  - Poor quality drug administered [Not Recovered/Not Resolved]
  - Product physical issue [Not Recovered/Not Resolved]
